FAERS Safety Report 20115130 (Version 2)
Quarter: 2021Q4

REPORT INFORMATION
  Report Type: Spontaneous
  Country: CN (occurrence: CN)
  Receive Date: 20211125
  Receipt Date: 20211201
  Transmission Date: 20220304
  Serious: Yes (Hospitalization)
  Sender: FDA-Public Use
  Company Number: CN-BAXTER-2021BAX036817

PATIENT
  Age: 58 Year
  Sex: Female
  Weight: 74 kg

DRUGS (6)
  1. CYCLOPHOSPHAMIDE [Suspect]
     Active Substance: CYCLOPHOSPHAMIDE
     Indication: Breast cancer
     Dosage: 800 MG OF CYCLOPHOSPHAMIDE FOR INJECTION +100 ML OF SALINE
     Route: 041
     Dates: start: 20211024, end: 20211024
  2. SODIUM CHLORIDE [Suspect]
     Active Substance: SODIUM CHLORIDE
     Indication: Medication dilution
     Dosage: 800 MG OF CYCLOPHOSPHAMIDE FOR INJECTION +100 ML OF SALINE
     Route: 041
     Dates: start: 20211024, end: 20211024
  3. SODIUM CHLORIDE [Suspect]
     Active Substance: SODIUM CHLORIDE
     Dosage: PACLITAXEL FOR INJECTION (ALBUMIN-BINDING TYPE) 450 MG + 90 ML OF SALINE
     Route: 041
     Dates: start: 20211024, end: 20211024
  4. DEXTROSE [Suspect]
     Active Substance: DEXTROSE
     Indication: Medication dilution
     Dosage: 50 MG OF DOXORUBICIN HYDROCHLORIDE INJECTION + 250 ML OF GLUCOSE INJECTION
     Route: 041
     Dates: start: 20211024, end: 20211024
  5. DOXORUBICIN HYDROCHLORIDE [Suspect]
     Active Substance: DOXORUBICIN HYDROCHLORIDE
     Indication: Breast cancer
     Dosage: 50 MG OF DOXORUBICIN HYDROCHLORIDE INJECTION + 250 ML OF GLUCOSE INJECTION
     Route: 041
     Dates: start: 20211024, end: 20211024
  6. PACLITAXEL [Suspect]
     Active Substance: PACLITAXEL
     Indication: Breast cancer
     Dosage: PACLITAXEL FOR INJECTION (ALBUMIN-BINDING TYPE) 450 MG + 90 ML OF SALINE
     Route: 041
     Dates: start: 20211024, end: 20211024

REACTIONS (4)
  - Myelosuppression [Recovered/Resolved]
  - Granulocytopenia [Recovered/Resolved]
  - Asthenia [Recovered/Resolved]
  - Headache [Recovered/Resolved]

NARRATIVE: CASE EVENT DATE: 20211101
